FAERS Safety Report 20346783 (Version 1)
Quarter: 2022Q1

REPORT INFORMATION
  Report Type: Spontaneous
  Country: US (occurrence: None)
  Receive Date: 20220116
  Receipt Date: 20220116
  Transmission Date: 20220423
  Serious: Yes (Disabling)
  Sender: FDA-Public Use
  Company Number: None

PATIENT
  Age: 62 Year
  Sex: Female
  Weight: 56.25 kg

DRUGS (1)
  1. CLOBETASOL PROPIONATE [Suspect]
     Active Substance: CLOBETASOL PROPIONATE
     Indication: Eczema
     Dates: start: 19611127, end: 20171001

REACTIONS (8)
  - Alopecia [None]
  - Weight decreased [None]
  - Withdrawal syndrome [None]
  - Eczema weeping [None]
  - Suicidal ideation [None]
  - Bedridden [None]
  - Drug ineffective [None]
  - Skin exfoliation [None]

NARRATIVE: CASE EVENT DATE: 20171001
